FAERS Safety Report 8919989 (Version 2)
Quarter: 2013Q1

REPORT INFORMATION
  Report Type: Spontaneous
  Country: FR (occurrence: FR)
  Receive Date: 20121121
  Receipt Date: 20130214
  Transmission Date: 20140127
  Serious: Yes (Death, Hospitalization)
  Sender: FDA-Public Use
  Company Number: FR-UCBSA-070943

PATIENT
  Sex: Female

DRUGS (4)
  1. CIMZIA [Suspect]
     Indication: RHEUMATOID ARTHRITIS
     Route: 058
     Dates: end: 201211
  2. CIMZIA [Suspect]
     Indication: RHEUMATOID ARTHRITIS
     Route: 058
     Dates: start: 201103
  3. ARAVA [Concomitant]
     Indication: RHEUMATOID ARTHRITIS
     Dosage: DOSE : 10 MG
  4. CORTISONE [Concomitant]
     Indication: RHEUMATOID ARTHRITIS
     Dosage: LOW DOSE

REACTIONS (8)
  - Staphylococcal sepsis [Fatal]
  - Multi-organ failure [Fatal]
  - Meningitis [Unknown]
  - Epiduritis [Unknown]
  - Respiratory arrest [Unknown]
  - Pleural effusion [Unknown]
  - Motor dysfunction [Unknown]
  - Disorientation [Unknown]
